FAERS Safety Report 8119433-5 (Version None)
Quarter: 2012Q1

REPORT INFORMATION
  Report Type: 
  Country: None (occurrence: None)
  Receive Date: 20120207
  Receipt Date: 20120202
  Transmission Date: 20120608
  Serious: Yes (Death, Hospitalization, Other)
  Sender: FDA-Public Use
  Company Number: BR-ABBOTT-12P-020-0901131-00

PATIENT
  Sex: Male

DRUGS (4)
  1. MIDAZOLAM [Suspect]
     Indication: SLEEP DISORDER THERAPY
  2. UNSPECIFIED DRUG [Concomitant]
     Indication: HYPERTENSION
  3. HUMIRA [Suspect]
     Indication: ANKYLOSING SPONDYLITIS
     Route: 058
     Dates: start: 20090201
  4. UNSPECIFIED DRUG [Concomitant]
     Indication: DIABETES MELLITUS

REACTIONS (7)
  - PNEUMONIA BACTERIAL [None]
  - SEPSIS [None]
  - ANKYLOSING SPONDYLITIS [None]
  - CONFUSIONAL STATE [None]
  - MALAISE [None]
  - RETINAL DETACHMENT [None]
  - HYPOPHAGIA [None]
